FAERS Safety Report 19862496 (Version 1)
Quarter: 2021Q3

REPORT INFORMATION
  Report Type: Spontaneous
  Country: SE (occurrence: SE)
  Receive Date: 20210921
  Receipt Date: 20210921
  Transmission Date: 20211014
  Serious: Yes (Hospitalization)
  Sender: FDA-Public Use
  Company Number: SE-MYLANLABS-2021M1063183

PATIENT
  Age: 69 Year
  Sex: Male

DRUGS (7)
  1. OLANZAPINE. [Suspect]
     Active Substance: OLANZAPINE
     Indication: PRODUCT USED FOR UNKNOWN INDICATION
     Dosage: 10 MILLIGRAM, QD
  2. ZOPICLONE [Concomitant]
     Active Substance: ZOPICLONE
     Dosage: UNK UNK, PRN (1 TABLETT KL 20:00 VID BEHOV)
     Dates: start: 20190918
  3. MIDAZOLAM. [Concomitant]
     Active Substance: MIDAZOLAM
     Dosage: UNK UNK, PRN (0,2?0,5 ML VID BEHOV)
     Route: 058
     Dates: start: 20200316
  4. LITHIONIT [Concomitant]
     Active Substance: LITHIUM SULFATE
     Dosage: 1 DEPOTTABLETT KL 08:00 OCH 2 DEPOTTABLETTER KL 20:00
     Dates: start: 20190918
  5. OXASCAND [Concomitant]
     Active Substance: OXAZEPAM
     Dosage: UNK UNK, PRN (1?2 TABLETTER VID BEHOV, H?GST 6 TABLETTER PER DYGN)
     Dates: start: 20200220
  6. ACETYLCYSTEINE. [Concomitant]
     Active Substance: ACETYLCYSTEINE
     Dosage: UNK UNK, PRN (1 BRUSTABLETT VID BEHOV, H?GST 3 BRUSTABLETTER PER DYGN)
     Dates: start: 20200309
  7. ALVEDON [Concomitant]
     Active Substance: ACETAMINOPHEN
     Dosage: 1000 MILLIGRAM, QD
     Dates: start: 20200311

REACTIONS (3)
  - Malaise [Recovered/Resolved]
  - Fatigue [Recovered/Resolved]
  - Depressed level of consciousness [Recovered/Resolved]

NARRATIVE: CASE EVENT DATE: 20210331
